FAERS Safety Report 7534453-7 (Version None)
Quarter: 2011Q2

REPORT INFORMATION
  Report Type: 
  Country: None (occurrence: None)
  Receive Date: 20110608
  Receipt Date: 20110527
  Transmission Date: 20111010
  Serious: Yes (Other)
  Sender: FDA-Public Use
  Company Number: BR-GENENTECH-313232

PATIENT
  Sex: Female
  Weight: 70 kg

DRUGS (6)
  1. METHOTREXATE [Concomitant]
     Indication: PRODUCT USED FOR UNKNOWN INDICATION
     Dosage: 15 MG, UNK
  2. FOLIC ACID [Concomitant]
     Indication: PRODUCT USED FOR UNKNOWN INDICATION
     Dosage: UNK
  3. OMEPRAZOLE [Concomitant]
     Indication: PRODUCT USED FOR UNKNOWN INDICATION
     Dosage: 20 MG, UNK
  4. RITUXIMAB [Suspect]
     Indication: RHEUMATOID ARTHRITIS
     Dosage: 1000 MG/ML, UNK
     Route: 065
     Dates: start: 20090811, end: 20090825
  5. TENOXICAM [Suspect]
     Indication: PRODUCT USED FOR UNKNOWN INDICATION
     Route: 065
  6. RITUXIMAB [Suspect]
     Dosage: UNK MG/ML, UNK
     Dates: start: 20110509

REACTIONS (6)
  - NAUSEA [None]
  - HYPOTHYROIDISM [None]
  - HYPERSENSITIVITY [None]
  - NASOPHARYNGITIS [None]
  - THYROID NEOPLASM [None]
  - RED BLOOD CELL SEDIMENTATION RATE ABNORMAL [None]
